FAERS Safety Report 16008155 (Version 4)
Quarter: 2019Q3

REPORT INFORMATION
  Report Type: Spontaneous
  Country: JP (occurrence: JP)
  Receive Date: 20190224
  Receipt Date: 20190906
  Transmission Date: 20191004
  Serious: Yes (Hospitalization, Other)
  Sender: FDA-Public Use
  Company Number: JP-AMGEN-JPNSP2019028603

PATIENT
  Age: 76 Year
  Sex: Female

DRUGS (29)
  1. G-LASTA [Suspect]
     Active Substance: PEGFILGRASTIM
     Indication: COLONY STIMULATING FACTOR THERAPY
     Dosage: 3.6 MILLIGRAM (SINGLE)
     Route: 058
     Dates: start: 20190118, end: 20190118
  2. SOLITA-T3 [Concomitant]
     Active Substance: POTASSIUM CHLORIDE\SODIUM CHLORIDE\SODIUM LACTATE
     Indication: PRODUCT USED FOR UNKNOWN INDICATION
     Dosage: 500 MILLILITER, QD
     Route: 041
     Dates: start: 20190128, end: 20190205
  3. LOXOPROFEN [LOXOPROFEN SODIUM] [Concomitant]
     Active Substance: LOXOPROFEN SODIUM
     Indication: PAIN
     Dosage: 60 MILLIGRAM, PRN (AT THE TIME OF PAIN)
     Route: 048
     Dates: start: 20190131
  4. MAGMITT [Concomitant]
     Active Substance: MAGNESIUM OXIDE
     Indication: PRODUCT USED FOR UNKNOWN INDICATION
     Dosage: 330 MILLIGRAM, QD (IMMEDIATELY AFTER LUNCH)
     Route: 048
     Dates: start: 20190131
  5. POTACOL R [Concomitant]
     Active Substance: CALCIUM CHLORIDE\MALTOSE\POTASSIUM CHLORIDE\SODIUM CHLORIDE\SODIUM LACTATE
     Indication: PRODUCT USED FOR UNKNOWN INDICATION
     Dosage: 500 MILLILITER, QD
     Route: 041
     Dates: start: 20190128, end: 20190205
  6. XYLOCAINE [Concomitant]
     Active Substance: LIDOCAINE HYDROCHLORIDE
     Indication: ORAL DISCOMFORT
     Dosage: 10 MILLILITER, PRN, (AT THE TIME OF MOUTH UNPLEASANTNESS)
     Route: 049
     Dates: start: 20190125
  7. LUNESTA [Concomitant]
     Active Substance: ESZOPICLONE
     Dosage: 1 MILLIGRAM, PRN (AT THE TIME OF SLEEPLESSNESS)
     Route: 048
     Dates: start: 20190131
  8. CRESTOR [Concomitant]
     Active Substance: ROSUVASTATIN CALCIUM
     Indication: PRODUCT USED FOR UNKNOWN INDICATION
     Dosage: 2.5 MILLIGRAM, QD (IMMEDIATELY AFTER BREAKFAST)
     Route: 048
     Dates: start: 20190131
  9. PAXIL [Concomitant]
     Active Substance: PAROXETINE HYDROCHLORIDE
     Indication: PRODUCT USED FOR UNKNOWN INDICATION
     Dosage: 10 MILLIGRAM, QD (IMMEDIATELY AFTER BREAKFAST)
     Route: 048
     Dates: start: 20190131
  10. NEXIUM [Concomitant]
     Active Substance: ESOMEPRAZOLE MAGNESIUM
     Indication: PRODUCT USED FOR UNKNOWN INDICATION
     Dosage: 20 MILLIGRAM, QD (IMMEDIATELY AFTER BREAKFAST)
     Route: 048
     Dates: start: 20190205
  11. DOXORUBICIN [Suspect]
     Active Substance: DOXORUBICIN
     Indication: BREAST CANCER
     Dosage: 8.5 MILLIGRAM
     Route: 041
     Dates: start: 20190117, end: 20190117
  12. BFLUID [Concomitant]
     Active Substance: AMINO ACIDS\DEXTROSE\ELECTROLYTES NOS\VITAMINS
     Dosage: 500 MILLILITER, QD
     Route: 041
     Dates: start: 20190206, end: 20190208
  13. HACHIAZULE [SODIUM BICARBONATE;SODIUM GUALENATE] [Concomitant]
     Indication: ORAL DISCOMFORT
     Dosage: 10 GRAM, PRN, (AT THE TIME OF MOUTH UNPLEASANTNESS)
     Route: 049
     Dates: start: 20190125
  14. NATRIX [Concomitant]
     Active Substance: INDAPAMIDE
     Indication: PRODUCT USED FOR UNKNOWN INDICATION
     Dosage: 2 MILLIGRAM, QD (IMMEDIATELY AFTER BREAKFAST)
     Route: 048
     Dates: start: 20190131
  15. PURIFIED WATER [Concomitant]
     Active Substance: WATER
     Indication: ORAL DISCOMFORT
     Dosage: 450 MILLILITER, PRN (AT THE TIME OF MOUTH UNPLEASANTNESS)
     Route: 049
     Dates: start: 20190125
  16. ZETIA [Concomitant]
     Active Substance: EZETIMIBE
     Indication: PRODUCT USED FOR UNKNOWN INDICATION
     Dosage: 10 MILLIGRAM, QD (IMMEDIATELY AFTER BREAKFAST)
     Route: 048
     Dates: start: 20190131
  17. ALDACTONE A [Concomitant]
     Active Substance: SPIRONOLACTONE
     Indication: PRODUCT USED FOR UNKNOWN INDICATION
     Dosage: 25 MILLIGRAM, QD (IMMEDIATELY AFTER BREAKFAST)
     Route: 048
     Dates: start: 20190131
  18. VITAMEDIN [CYANOCOBALAMIN;PYRIDOXINE HYDROCHLORIDE;THIAMINE HYDROCHLOR [Concomitant]
     Indication: PRODUCT USED FOR UNKNOWN INDICATION
     Dosage: 1 DOSAGE FORM, QD
     Route: 041
     Dates: start: 20190129, end: 20190208
  19. LUNESTA [Concomitant]
     Active Substance: ESZOPICLONE
     Indication: INSOMNIA
     Dosage: 1 MILLIGRAM, (AT THE TIME OF SLEEPLESSNESS)
     Route: 048
     Dates: start: 20190128
  20. LUNESTA [Concomitant]
     Active Substance: ESZOPICLONE
     Dosage: 1 MILLIGRAM, PRN, (AT THE TIME OF SLEEPLESSNESS)
     Route: 048
     Dates: start: 20190207
  21. AFTACH [Concomitant]
     Active Substance: TRIAMCINOLONE
     Indication: PRODUCT USED FOR UNKNOWN INDICATION
     Dosage: 25 MICROGRAM, QD (APPLICATION SITE: ORAL AFFECTED AREA)
     Route: 061
     Dates: start: 20190128
  22. BFLUID [Concomitant]
     Active Substance: AMINO ACIDS\DEXTROSE\ELECTROLYTES NOS\VITAMINS
     Indication: PRODUCT USED FOR UNKNOWN INDICATION
     Dosage: 500 MILLILITER, QD
     Route: 041
     Dates: start: 20190125, end: 20190205
  23. LEVOFLOXACIN HEMIHYDRATE [Concomitant]
     Active Substance: LEVOFLOXACIN
     Indication: PRODUCT USED FOR UNKNOWN INDICATION
     Dosage: 500 MILLIGRAM, QD (IMMEDIATELY AFTER BREAKFAST)
     Route: 048
     Dates: start: 20190125
  24. GLYCERINE [Concomitant]
     Active Substance: GLYCERIN
     Indication: PRODUCT USED FOR UNKNOWN INDICATION
     Dosage: 50 MILLILITER, ACCORDING TO INSTRUCTIONS OF THE DOCTOR
     Route: 049
     Dates: start: 20190125
  25. DEXALTIN [Concomitant]
     Active Substance: DEXAMETHASONE
     Indication: PRODUCT USED FOR UNKNOWN INDICATION
     Dosage: UNK, QD (APPLICATION SITE: ORAL CAVITY)
     Route: 061
     Dates: start: 20190128
  26. DEXALTIN [Concomitant]
     Active Substance: DEXAMETHASONE
     Dosage: UNK, QD (APPLICATION SITE: ORAL CAVITY)
     Route: 061
     Dates: start: 20190131
  27. WHITE PETROLATUM [Concomitant]
     Active Substance: PETROLATUM
     Indication: PRODUCT USED FOR UNKNOWN INDICATION
     Dosage: UNK, QD (APPLICATION SITE: LIPS)
     Route: 061
     Dates: start: 20190205
  28. ENDOXAN [CYCLOPHOSPHAMIDE] [Suspect]
     Active Substance: CYCLOPHOSPHAMIDE
     Indication: BREAST CANCER
     Dosage: 850 MILLIGRAM
     Route: 041
     Dates: start: 20190117, end: 20190117
  29. SOLANAX [Concomitant]
     Active Substance: ALPRAZOLAM
     Indication: PRODUCT USED FOR UNKNOWN INDICATION
     Dosage: 0.4 MILLIGRAM, BID (IMMEDIATELY AFTER BREAKFAST AND DINNER)
     Route: 048
     Dates: start: 20190131

REACTIONS (5)
  - Anaemia [Recovered/Resolved]
  - Thrombocytopenia [Recovered/Resolved]
  - Agranulocytosis [Recovered/Resolved]
  - Colony stimulating factor therapy [Unknown]
  - Febrile neutropenia [Recovered/Resolved]

NARRATIVE: CASE EVENT DATE: 20190124
